FAERS Safety Report 17565864 (Version 1)
Quarter: 2020Q1

REPORT INFORMATION
  Report Type: Spontaneous
  Country: US (occurrence: US)
  Receive Date: 20200310
  Receipt Date: 20200310
  Transmission Date: 20200409
  Serious: No
  Sender: FDA-Public Use
  Company Number: None

PATIENT
  Age: 81 Year
  Sex: Male
  Weight: 79.38 kg

DRUGS (1)
  1. PEMBROLIZUMAB (PEMBROLIZUMAB 25MG/ML INJ, SOLN, 4ML) [Suspect]
     Active Substance: PEMBROLIZUMAB
     Indication: NON-SMALL CELL LUNG CANCER METASTATIC
     Dosage: ?          OTHER STRENGTH:25MG/ML, 4ML;OTHER DOSE:149-150 MG;?
     Route: 042
     Dates: start: 20171016, end: 20180129

REACTIONS (3)
  - Dyspnoea exertional [None]
  - Productive cough [None]
  - Pneumonitis [None]

NARRATIVE: CASE EVENT DATE: 20180129
